FAERS Safety Report 5174005-X (Version None)
Quarter: 2006Q4

REPORT INFORMATION
  Report Type: 
  Country: None (occurrence: None)
  Receive Date: 20061214
  Receipt Date: 20061201
  Transmission Date: 20070319
  Serious: Yes (Other)
  Sender: FDA-Public Use
  Company Number: US-MERCK-0612USA00402

PATIENT
  Age: 48 Year
  Sex: Female

DRUGS (4)
  1. MAXALT [Suspect]
     Indication: MIGRAINE
     Route: 048
     Dates: end: 20061101
  2. EFFEXOR [Concomitant]
     Route: 065
  3. FEMHRT [Concomitant]
     Route: 065
  4. METHERGINE [Concomitant]
     Route: 065

REACTIONS (2)
  - CORONARY ARTERY STENOSIS [None]
  - HYPOAESTHESIA [None]
